FAERS Safety Report 8244152-4 (Version None)
Quarter: 2012Q1

REPORT INFORMATION
  Report Type: 
  Country: None (occurrence: None)
  Receive Date: 20120329
  Receipt Date: 20120320
  Transmission Date: 20120608
  Serious: Yes (Hospitalization, Other)
  Sender: FDA-Public Use
  Company Number: US-MERCK-1108USA01237

PATIENT
  Age: 58 Year
  Sex: Female
  Weight: 68 kg

DRUGS (3)
  1. FOSAMAX [Suspect]
     Indication: OSTEOPOROSIS
     Route: 048
     Dates: start: 19950101, end: 20080101
  2. ALENDRONATE SODIUM [Suspect]
     Route: 048
     Dates: start: 20070901, end: 20090101
  3. FOSAMAX [Suspect]
     Route: 065
     Dates: start: 20100201

REACTIONS (28)
  - DEAFNESS [None]
  - NASAL DISORDER [None]
  - CHRONIC OBSTRUCTIVE PULMONARY DISEASE [None]
  - FEMUR FRACTURE [None]
  - GALLBLADDER DISORDER [None]
  - HAEMOGLOBIN DECREASED [None]
  - OSTEOPENIA [None]
  - FATIGUE [None]
  - HYPERTENSION [None]
  - HEADACHE [None]
  - GASTROOESOPHAGEAL REFLUX DISEASE [None]
  - ANXIETY [None]
  - LIPIDS INCREASED [None]
  - RESTLESS LEGS SYNDROME [None]
  - UTERINE DISORDER [None]
  - EAR DISORDER [None]
  - BALANCE DISORDER [None]
  - BLINDNESS [None]
  - TONSILLAR DISORDER [None]
  - PATELLA FRACTURE [None]
  - FALL [None]
  - HAEMATOCRIT DECREASED [None]
  - OSTEOARTHRITIS [None]
  - VISION BLURRED [None]
  - BRONCHOSPASM [None]
  - DEPRESSION [None]
  - BREAST PAIN [None]
  - VITAMIN D DEFICIENCY [None]
